FAERS Safety Report 6137009-6 (Version None)
Quarter: 2009Q1

REPORT INFORMATION
  Report Type: 
  Country: None (occurrence: None)
  Receive Date: 20090330
  Receipt Date: 20090309
  Transmission Date: 20090719
  Serious: No
  Sender: FDA-Public Use
  Company Number: US-BAYER-200915769GPV

PATIENT
  Age: 70 Year
  Sex: Female
  Weight: 67 kg

DRUGS (3)
  1. SULAR [Suspect]
     Indication: HYPERTENSION
     Route: 048
     Dates: start: 20070101, end: 20080101
  2. SULAR [Suspect]
     Route: 048
     Dates: start: 20080101
  3. ADVAIR HFA [Concomitant]
     Indication: ASTHMA
     Dosage: INHALTER
     Route: 065

REACTIONS (1)
  - OEDEMA PERIPHERAL [None]
